FAERS Safety Report 14602621 (Version 1)
Quarter: 2018Q1

REPORT INFORMATION
  Report Type: Spontaneous
  Country: US (occurrence: US)
  Receive Date: 20180306
  Receipt Date: 20180306
  Transmission Date: 20180509
  Serious: Yes (Other)
  Sender: FDA-Public Use
  Company Number: US-TESARO, INC-US-2017TSO03942

PATIENT

DRUGS (2)
  1. COMPAZINE                          /00013302/ [Suspect]
     Active Substance: PROCHLORPERAZINE EDISYLATE
     Indication: NAUSEA
     Dosage: UNK
  2. ZEJULA [Suspect]
     Active Substance: NIRAPARIB
     Indication: OVARIAN CANCER
     Dosage: UNK

REACTIONS (9)
  - Memory impairment [Unknown]
  - Insomnia [Unknown]
  - Malaise [Unknown]
  - Nausea [Not Recovered/Not Resolved]
  - Post procedural complication [Unknown]
  - Bone pain [Unknown]
  - Feeling abnormal [Unknown]
  - Pyrexia [Unknown]
  - Headache [Unknown]
